FAERS Safety Report 8458969-4 (Version None)
Quarter: 2012Q2

REPORT INFORMATION
  Report Type: 
  Country: None (occurrence: None)
  Receive Date: 20120622
  Receipt Date: 20120612
  Transmission Date: 20120825
  Serious: Yes (Hospitalization)
  Sender: FDA-Public Use
  Company Number: JP-ROCHE-1047757

PATIENT
  Sex: Male
  Weight: 72 kg

DRUGS (1)
  1. TAMIFLU [Suspect]
     Indication: INFLUENZA
     Route: 048
     Dates: start: 20120215, end: 20120219

REACTIONS (3)
  - DIZZINESS [None]
  - DIZZINESS POSTURAL [None]
  - HYPOAESTHESIA [None]
